FAERS Safety Report 4530193-7 (Version None)
Quarter: 2004Q4

REPORT INFORMATION
  Report Type: 
  Country: None (occurrence: None)
  Receive Date: 20041215
  Receipt Date: 20041207
  Transmission Date: 20050328
  Serious: Yes (Hospitalization)
  Sender: FDA-Public Use
  Company Number: HQWYE780607DEC04

PATIENT
  Age: 63 Year
  Sex: Female

DRUGS (5)
  1. OSTELUC (ETODOLAC, UNSPEC) [Suspect]
     Indication: SPONDYLOSIS
     Dosage: 400 MG 1X PER 1 DAY; ORAL
     Route: 048
     Dates: start: 20040907, end: 20040908
  2. ECABET MONOSODIUM (ECABET MONOSODIUM, ) [Suspect]
     Dosage: 2 G 1X PER 1 DAY;
     Route: 065
     Dates: start: 20040907, end: 20040908
  3. NIFEDIPINE [Concomitant]
  4. ETIZOLAM [Concomitant]
  5. TRIAZOLAM [Concomitant]

REACTIONS (7)
  - AORTIC VALVE INCOMPETENCE [None]
  - BLOOD PRESSURE DIASTOLIC DECREASED [None]
  - BLOOD PRESSURE SYSTOLIC INCREASED [None]
  - BRAIN NATRIURETIC PEPTIDE INCREASED [None]
  - CARDIOMEGALY [None]
  - DYSPNOEA [None]
  - OEDEMA PERIPHERAL [None]
